FAERS Safety Report 10832075 (Version 1)
Quarter: 2015Q1

REPORT INFORMATION
  Report Type: Spontaneous
  Country: BR (occurrence: BR)
  Receive Date: 20150219
  Receipt Date: 20150219
  Transmission Date: 20150721
  Serious: Yes (Other)
  Sender: FDA-Public Use
  Company Number: BR-GLAXOSMITHKLINE-BR2015GSK018298

PATIENT
  Age: 55 Year
  Sex: Female

DRUGS (4)
  1. PROZAC (FLUOXETINE HCL) [Concomitant]
     Indication: PRODUCT USED FOR UNKNOWN INDICATION
     Dosage: UNK
  2. HIGH BLOOD PRESSURE TREATMENT - UNKNOWN [Concomitant]
     Indication: PRODUCT USED FOR UNKNOWN INDICATION
     Dosage: UNK
  3. ALPRAZOLAM. [Concomitant]
     Active Substance: ALPRAZOLAM
     Indication: PRODUCT USED FOR UNKNOWN INDICATION
     Dosage: UNK
  4. BENLYSTA [Suspect]
     Active Substance: BELIMUMAB
     Indication: SYSTEMIC LUPUS ERYTHEMATOSUS
     Dosage: UNK

REACTIONS (11)
  - Hypotonia [Recovered/Resolved]
  - Hypertension [Unknown]
  - Loss of consciousness [Unknown]
  - Muscle contractions involuntary [Recovered/Resolved]
  - Malaise [Recovered/Resolved]
  - Urinary incontinence [Recovered/Resolved]
  - Eyelid function disorder [Unknown]
  - Hypoaesthesia [Not Recovered/Not Resolved]
  - Syncope [Recovered/Resolved]
  - Vomiting [Recovered/Resolved]
  - Hyperhidrosis [Recovered/Resolved]
